FAERS Safety Report 17261378 (Version 1)
Quarter: 2020Q1

REPORT INFORMATION
  Report Type: Spontaneous
  Country: FR (occurrence: FR)
  Receive Date: 20200113
  Receipt Date: 20200113
  Transmission Date: 20200409
  Serious: Yes (Other)
  Sender: FDA-Public Use
  Company Number: FR-ACCORD-169319

PATIENT
  Sex: Male

DRUGS (12)
  1. CARBOPLATINE ACCORD [Suspect]
     Active Substance: CARBOPLATIN
     Indication: SQUAMOUS CELL CARCINOMA OF SKIN
     Route: 042
     Dates: start: 201608, end: 20170311
  2. ERBITUX [Suspect]
     Active Substance: CETUXIMAB
     Indication: SQUAMOUS CELL CARCINOMA OF SKIN
     Dosage: UNSPECIFIED
     Route: 042
     Dates: start: 201608, end: 20170311
  3. XATRAL [Concomitant]
     Active Substance: ALFUZOSIN
  4. KEYTRUDA [Concomitant]
     Active Substance: PEMBROLIZUMAB
  5. FLUOROURACIL ACCORD [Suspect]
     Active Substance: FLUOROURACIL
     Indication: SQUAMOUS CELL CARCINOMA OF SKIN
     Dosage: UNSPECIFIED
     Route: 042
     Dates: start: 201702, end: 20170311
  6. TAXOL [Concomitant]
     Active Substance: PACLITAXEL
  7. PARACETAMOL [Concomitant]
     Active Substance: ACETAMINOPHEN
  8. ABASAGLAR [Concomitant]
     Active Substance: INSULIN GLARGINE
  9. INEXIUM [Concomitant]
     Active Substance: ESOMEPRAZOLE
  10. TARDYFERON [Concomitant]
     Active Substance: FERROUS SULFATE
  11. PREGABALIN. [Concomitant]
     Active Substance: PREGABALIN
  12. LIBTAYO [Suspect]
     Active Substance: CEMIPLIMAB-RWLC
     Indication: SQUAMOUS CELL CARCINOMA OF SKIN
     Route: 042
     Dates: start: 20190521

REACTIONS (4)
  - Off label use [Unknown]
  - Cholestasis [Not Recovered/Not Resolved]
  - C-reactive protein increased [Not Recovered/Not Resolved]
  - Condition aggravated [Not Recovered/Not Resolved]

NARRATIVE: CASE EVENT DATE: 201608
